FAERS Safety Report 23600824 (Version 1)
Quarter: 2024Q1

REPORT INFORMATION
  Report Type: Spontaneous
  Country: US (occurrence: US)
  Receive Date: 20240306
  Receipt Date: 20240306
  Transmission Date: 20240409
  Serious: Yes (Other)
  Sender: FDA-Public Use
  Company Number: US-SAMSUNG BIOEPIS-SB-2023-29425

PATIENT
  Sex: Female

DRUGS (1)
  1. HADLIMA [Suspect]
     Active Substance: ADALIMUMAB-BWWD
     Indication: Product used for unknown indication
     Dosage: UNKNOWN; STARTED SOMETIME IN THE LAST TWO WEEKS.
     Route: 058

REACTIONS (4)
  - Rectal haemorrhage [Unknown]
  - Diarrhoea [Unknown]
  - Pruritus [Unknown]
  - Injection site pain [Unknown]
